FAERS Safety Report 9728099 (Version 1)
Quarter: 2013Q4

REPORT INFORMATION
  Report Type: Spontaneous
  Country: GB (occurrence: None)
  Receive Date: 20131127
  Receipt Date: 20131127
  Transmission Date: 20140711
  Serious: Yes (Hospitalization)
  Sender: FDA-Public Use
  Company Number: IPC201311-000480

PATIENT
  Age: 78 Year
  Sex: Male

DRUGS (6)
  1. METFORMIN HYDROCHLORIDE (METFORMIN HYDROCHLORIDE) (METFORMIN HYDROCHLORIDE) [Suspect]
     Indication: TYPE 2 DIABETES MELLITUS
     Dosage: 1 G, TWICE DAILY
  2. ALLOPURINOL (ALLOPURINOL) (ALLOPURINOL) [Suspect]
  3. AMLODIPINE BESILATE [Suspect]
  4. GLICLAZIDE [Suspect]
  5. PARACETAMOL (PARACETAMOL) (PARACETAMOL) [Suspect]
  6. DOXAZOCIN [Suspect]

REACTIONS (7)
  - Hypoglycaemia [None]
  - Microcytic anaemia [None]
  - Urinary tract infection [None]
  - Somnolence [None]
  - Cognitive disorder [None]
  - Blood pressure increased [None]
  - Renal disorder [None]
